FAERS Safety Report 11481697 (Version 2)
Quarter: 2015Q3

REPORT INFORMATION
  Report Type: Spontaneous
  Country: US (occurrence: US)
  Receive Date: 20150903
  Receipt Date: 20150903
  Transmission Date: 20151125
  Serious: No
  Sender: FDA-Public Use
  Company Number: US-ELI_LILLY_AND_COMPANY-US201203005798

PATIENT
  Age: 67 Year
  Sex: Female

DRUGS (2)
  1. CYMBALTA [Suspect]
     Active Substance: DULOXETINE HYDROCHLORIDE
     Indication: DIABETIC NEUROPATHY
     Dosage: 60 MG, QD
     Dates: start: 20120317, end: 20120317
  2. XANAX                                   /USA/ [Concomitant]
     Dosage: 0.5 DF, UNKNOWN
     Dates: start: 20120318

REACTIONS (9)
  - Insomnia [Unknown]
  - Somnolence [Unknown]
  - Headache [Unknown]
  - Blood pressure increased [Unknown]
  - Burning sensation [Unknown]
  - Skin burning sensation [Unknown]
  - Intentional product misuse [Unknown]
  - Heart rate increased [Unknown]
  - Paraesthesia [Unknown]

NARRATIVE: CASE EVENT DATE: 20120317
